FAERS Safety Report 18493611 (Version 1)
Quarter: 2020Q4

REPORT INFORMATION
  Report Type: Report from Study
  Country: US (occurrence: US)
  Receive Date: 20201112
  Receipt Date: 20201112
  Transmission Date: 20210114
  Serious: Yes (Other)
  Sender: FDA-Public Use
  Company Number: US-SHIRE-US201916759

PATIENT
  Sex: Female

DRUGS (3)
  1. HUMAN NORMAL IMMUNOGLOBULIN SD [Suspect]
     Active Substance: HUMAN IMMUNOGLOBULIN G
     Indication: IMMUNODEFICIENCY COMMON VARIABLE
     Dosage: 20 GRAM, 1X/2WKS
     Route: 042
  2. HUMAN NORMAL IMMUNOGLOBULIN SD [Suspect]
     Active Substance: HUMAN IMMUNOGLOBULIN G
     Indication: IMMUNODEFICIENCY COMMON VARIABLE
     Dosage: 20 GRAM, 1X/2WKS
     Route: 042
  3. CUVITRU [Concomitant]
     Active Substance: HUMAN IMMUNOGLOBULIN G
     Indication: PRODUCT USED FOR UNKNOWN INDICATION

REACTIONS (12)
  - Vertigo [Unknown]
  - Hypertension [Unknown]
  - Fluid retention [Unknown]
  - Pain [Unknown]
  - Migraine [Unknown]
  - Inability to afford medication [Unknown]
  - Arthritis [Unknown]
  - Breast cancer [Unknown]
  - Illness [Unknown]
  - Pruritus [Unknown]
  - Incorrect product administration duration [Unknown]
  - Weight decreased [Unknown]
